FAERS Safety Report 7978357-4 (Version None)
Quarter: 2011Q4

REPORT INFORMATION
  Report Type: 
  Country: None (occurrence: None)
  Receive Date: 20111214
  Receipt Date: 20111209
  Transmission Date: 20120403
  Serious: Yes (Hospitalization, Other)
  Sender: FDA-Public Use
  Company Number: US-PFIZER INC-2011070588

PATIENT
  Sex: Female
  Weight: 48.526 kg

DRUGS (11)
  1. HYDROCHLOROTHIAZIDE [Concomitant]
     Indication: HYPERTENSION
     Dosage: UNK
  2. LAMICTAL [Concomitant]
     Indication: CONVULSION
     Dosage: 150 MG, TWO OR THREE TIMES A DAY
     Route: 048
  3. PLAVIX [Concomitant]
     Indication: ANTICOAGULANT THERAPY
     Dosage: UNK
  4. TOPROL-XL [Concomitant]
     Indication: CARDIAC DISORDER
     Dosage: UNK
     Route: 048
  5. PRISTIQ [Suspect]
     Indication: DEPRESSION
     Dosage: UNK
     Route: 048
     Dates: start: 20070101
  6. ROSUVASTATIN CALCIUM [Suspect]
     Dosage: UNK
  7. PRISTIQ [Suspect]
     Dosage: 100 MG, DAILY
     Route: 048
     Dates: end: 20110301
  8. PRISTIQ [Suspect]
     Dosage: 100 MG, 1X/DAY
     Dates: start: 20110101
  9. ISOSORBIDE MONONITRATE [Concomitant]
     Dosage: UNK
  10. ZANAFLEX [Concomitant]
     Indication: MUSCLE RELAXANT THERAPY
     Dosage: UNK
  11. NORVASC [Suspect]
     Indication: HYPERTENSION
     Dosage: 10 MG, 1X/DAY
     Route: 048
     Dates: start: 20080501

REACTIONS (24)
  - NIGHTMARE [None]
  - FEELING COLD [None]
  - MEMORY IMPAIRMENT [None]
  - CRYING [None]
  - HOT FLUSH [None]
  - BODY TEMPERATURE FLUCTUATION [None]
  - LOSS OF CONSCIOUSNESS [None]
  - BLOOD POTASSIUM DECREASED [None]
  - NERVOUSNESS [None]
  - INFLUENZA [None]
  - GASTRIC DISORDER [None]
  - RESPIRATORY ARREST [None]
  - IRRITABILITY [None]
  - DISCOMFORT [None]
  - ANGER [None]
  - CONVULSION [None]
  - ABNORMAL DREAMS [None]
  - AMNESIA [None]
  - COGNITIVE DISORDER [None]
  - DEPRESSION [None]
  - WITHDRAWAL SYNDROME [None]
  - DIZZINESS [None]
  - HYPOVITAMINOSIS [None]
  - APPETITE DISORDER [None]
